FAERS Safety Report 9773695 (Version 2)
Quarter: 2013Q4

REPORT INFORMATION
  Report Type: Spontaneous
  Country: JP (occurrence: JP)
  Receive Date: 20131219
  Receipt Date: 20131219
  Transmission Date: 20140711
  Serious: Yes (Hospitalization, Other)
  Sender: FDA-Public Use
  Company Number: JP-B.I. PHARMACEUTICALS,INC./RIDGEFIELD-2013-BI-40935NB

PATIENT
  Age: 66 Year
  Sex: Male

DRUGS (5)
  1. MIRAPEX LA [Suspect]
     Dosage: 4.5 MG
     Route: 048
     Dates: end: 20131206
  2. OPSO / MORPHINE HYDROCHLORIDE HYDRATE [Concomitant]
     Dosage: 30 MG
     Route: 048
     Dates: start: 20131125, end: 20131208
  3. NEODOPASTON / LEVODOPA_CARBIDOPA HYDRATE [Concomitant]
     Dosage: 300 MG
  4. TRYPTANOL / AMITRIPTYLINE HYDROCHLORIDE [Concomitant]
     Dosage: 30 MG
  5. LIMARMONE / LIMAPROST ALFADEX [Concomitant]
     Dosage: 15 MCG

REACTIONS (2)
  - Pharyngeal cancer [Unknown]
  - Pneumonia aspiration [Not Recovered/Not Resolved]
